FAERS Safety Report 8432968-0 (Version None)
Quarter: 2012Q2

REPORT INFORMATION
  Report Type: 
  Country: None (occurrence: None)
  Receive Date: 20120613
  Receipt Date: 20120604
  Transmission Date: 20120825
  Serious: Yes (Hospitalization)
  Sender: FDA-Public Use
  Company Number: BR-ASTRAZENECA-2012SE37743

PATIENT
  Age: 60 Year
  Sex: Female
  Weight: 58 kg

DRUGS (5)
  1. SUSTRATE [Concomitant]
     Indication: HYPERTENSION
  2. CRESTOR [Suspect]
     Indication: ARTERIOSCLEROSIS
     Route: 048
     Dates: start: 20060101
  3. BRILINTA [Suspect]
     Indication: MYOCARDIAL INFARCTION
     Route: 048
     Dates: start: 20120301
  4. ATENOLOL [Suspect]
     Indication: HYPERTENSION
     Route: 048
  5. SOMALGIN [Concomitant]
     Indication: HYPERTENSION
     Dosage: OD

REACTIONS (3)
  - INTENTIONAL DRUG MISUSE [None]
  - MYOCARDIAL ISCHAEMIA [None]
  - OFF LABEL USE [None]
